FAERS Safety Report 23258602 (Version 2)
Quarter: 2024Q1

REPORT INFORMATION
  Report Type: Spontaneous
  Country: US (occurrence: US)
  Receive Date: 20231204
  Receipt Date: 20240122
  Transmission Date: 20240410
  Serious: No
  Sender: FDA-Public Use
  Company Number: US-PFIZER INC-202101655867

PATIENT
  Age: 65 Year
  Sex: Female
  Weight: 53.515 kg

DRUGS (3)
  1. XELJANZ XR [Suspect]
     Active Substance: TOFACITINIB CITRATE
     Indication: Psoriatic arthropathy
     Dosage: 11 MG, ALTERNATE DAY
     Route: 048
     Dates: start: 2022
  2. PREDNISONE [Concomitant]
     Active Substance: PREDNISONE
     Dosage: UNK
     Dates: start: 2017
  3. XANAX XR [Concomitant]
     Active Substance: ALPRAZOLAM
     Dosage: 1 MG, DAILY
     Dates: start: 2023

REACTIONS (1)
  - Off label use [Recovered/Resolved]
